FAERS Safety Report 9065093 (Version 1)
Quarter: 2013Q1

REPORT INFORMATION
  Report Type: Report from Study
  Country: US (occurrence: US)
  Receive Date: 20130130
  Receipt Date: 20130130
  Transmission Date: 20140127
  Serious: No
  Sender: FDA-Public Use
  Company Number: US-ABBOTT-12P-163-0969423-00

PATIENT
  Sex: Female

DRUGS (28)
  1. HUMIRA 40 MG/0.8 ML PEN [Suspect]
     Indication: PSORIASIS
     Dates: start: 20120703
  2. ALLOPURINOL [Concomitant]
     Indication: GOUT
  3. ALPRAZOLAM [Concomitant]
     Indication: ANXIETY
  4. AMLODIPINE [Concomitant]
     Indication: HYPERTENSION
  5. ARMOUR THYROID [Concomitant]
     Indication: THYROID DISORDER
  6. ASPIRIN [Concomitant]
     Indication: CARDIAC DISORDER
  7. CALCIUM WITH VITAMIN D [Concomitant]
     Indication: VITAMIN SUPPLEMENTATION
  8. DIOVAN [Concomitant]
     Indication: HYPERTENSION
  9. EFFEXOR [Concomitant]
     Indication: DEPRESSION
  10. FOLBIC [Concomitant]
     Indication: VITAMIN SUPPLEMENTATION
  11. HYDROCORTISONE [Concomitant]
     Indication: PRODUCT USED FOR UNKNOWN INDICATION
  12. JANUVIA [Concomitant]
     Indication: DIABETES MELLITUS
  13. LASIX [Concomitant]
     Indication: FLUID RETENTION
  14. LOVASA [Concomitant]
     Indication: BLOOD CHOLESTEROL INCREASED
  15. MIRALAX [Concomitant]
     Indication: CONSTIPATION
  16. MULTIVITAMIN [Concomitant]
     Indication: VITAMIN SUPPLEMENTATION
  17. NAPROXEN [Concomitant]
     Indication: PAIN
  18. OMEPRAZOLE [Concomitant]
     Indication: GASTROOESOPHAGEAL REFLUX DISEASE
  19. POTASSIUM [Concomitant]
     Indication: MINERAL SUPPLEMENTATION
  20. RESTORIL [Concomitant]
     Indication: INSOMNIA
  21. SINGULAIR [Concomitant]
     Indication: ASTHMA
  22. TRAZODONE [Concomitant]
     Indication: DEPRESSION
  23. TUMS [Concomitant]
     Indication: DYSPEPSIA
  24. VICODIN [Concomitant]
     Indication: PAIN
  25. VITAMIN D [Concomitant]
     Indication: VITAMIN SUPPLEMENTATION
  26. WELCHOL [Concomitant]
     Indication: BLOOD CHOLESTEROL INCREASED
  27. WELLBUTRIN [Concomitant]
     Indication: DEPRESSION
  28. XYZAL [Concomitant]
     Indication: HYPERSENSITIVITY

REACTIONS (5)
  - Insomnia [Not Recovered/Not Resolved]
  - Fatigue [Not Recovered/Not Resolved]
  - Oropharyngeal pain [Not Recovered/Not Resolved]
  - Psoriasis [Not Recovered/Not Resolved]
  - Alopecia [Not Recovered/Not Resolved]
